FAERS Safety Report 19762225 (Version 1)
Quarter: 2021Q3

REPORT INFORMATION
  Report Type: Report from Study
  Country: IN (occurrence: IN)
  Receive Date: 20210827
  Receipt Date: 20210827
  Transmission Date: 20211014
  Serious: Yes (Hospitalization)
  Sender: FDA-Public Use
  Company Number: PHHY2019IN013675

PATIENT
  Age: 56 Year
  Sex: Male

DRUGS (3)
  1. VYMADA [Suspect]
     Active Substance: SACUBITRIL\VALSARTAN
     Indication: CARDIAC FAILURE CHRONIC
     Dosage: 100 UNK (100 MG 1/2 OD)
     Route: 048
     Dates: start: 20190115
  2. VYMADA [Suspect]
     Active Substance: SACUBITRIL\VALSARTAN
     Dosage: 100 MG (49/51 MG  SACUBITRIL/VALSARTAN), BID (1/2 BD)
     Route: 048
     Dates: start: 20190116, end: 20200715
  3. VYMADA [Suspect]
     Active Substance: SACUBITRIL\VALSARTAN
     Dosage: 100 UNK (100 MG 1/2 OD)
     Route: 048
     Dates: start: 20200715

REACTIONS (7)
  - Vomiting [Recovered/Resolved]
  - Product prescribing error [Unknown]
  - Dyspnoea [Recovered/Resolved]
  - Dyspnoea [Recovered/Resolved]
  - Cough [Recovered/Resolved]
  - Wrong technique in product usage process [Unknown]
  - Cough [Recovering/Resolving]

NARRATIVE: CASE EVENT DATE: 20190116
